FAERS Safety Report 10042586 (Version 1)
Quarter: 2014Q1

REPORT INFORMATION
  Report Type: Spontaneous
  Country: GB (occurrence: GB)
  Receive Date: 20140327
  Receipt Date: 20140327
  Transmission Date: 20141002
  Serious: Yes (Hospitalization, Other)
  Sender: FDA-Public Use
  Company Number: GB-009507513-1403GBR011478

PATIENT
  Age: 77 Year
  Sex: Female

DRUGS (5)
  1. DEXAMETHASONE 4MG/ML INJECTION [Suspect]
     Indication: RADIOTHERAPY
     Dosage: 8 MG, QD
     Route: 051
     Dates: start: 201401
  2. DEXAMETHASONE 4MG/ML INJECTION [Suspect]
     Dosage: 4 MG, QD
     Route: 051
     Dates: start: 2014
  3. BETAHISTINE [Concomitant]
  4. LAMOTRIGINE [Concomitant]
  5. ACETAMINOPHEN [Concomitant]

REACTIONS (1)
  - Diabetes mellitus [Recovering/Resolving]
